FAERS Safety Report 9137875 (Version 1)
Quarter: 2013Q1

REPORT INFORMATION
  Report Type: Spontaneous
  Country: IT (occurrence: IT)
  Receive Date: 20130304
  Receipt Date: 20130304
  Transmission Date: 20140127
  Serious: Yes (Hospitalization, Other)
  Sender: FDA-Public Use
  Company Number: IT-ASTRAZENECA-2013SE12523

PATIENT
  Age: 29558 Day
  Sex: Male

DRUGS (8)
  1. OMEPRAZOLE [Suspect]
     Indication: PROPHYLAXIS AGAINST GASTROINTESTINAL ULCER
     Route: 048
     Dates: start: 2008
  2. TORVAST [Suspect]
     Indication: DYSLIPIDAEMIA
     Route: 048
     Dates: start: 2008
  3. NORVASC [Concomitant]
     Indication: ESSENTIAL HYPERTENSION
     Dates: start: 2008
  4. ENAPREN [Concomitant]
     Indication: ESSENTIAL HYPERTENSION
     Dates: start: 2008
  5. CARDIOASPIRIN [Concomitant]
     Indication: PERIPHERAL ARTERIAL OCCLUSIVE DISEASE
     Dates: start: 2008
  6. AMARYL [Concomitant]
     Indication: DIABETES MELLITUS
     Dates: start: 2008
  7. AVODART [Concomitant]
     Indication: BENIGN PROSTATIC HYPERPLASIA
     Dates: start: 2008
  8. XATRAL [Concomitant]
     Indication: BENIGN PROSTATIC HYPERPLASIA
     Dates: start: 2008

REACTIONS (8)
  - Hypocalcaemia [Recovered/Resolved]
  - Hypokalaemia [Recovered/Resolved]
  - Muscle spasms [Unknown]
  - Rhabdomyolysis [Unknown]
  - Dystonia [Unknown]
  - Hypomagnesaemia [Recovered/Resolved]
  - Myalgia [Recovered/Resolved]
  - Hypoparathyroidism [Unknown]
